FAERS Safety Report 6151628-2 (Version None)
Quarter: 2009Q2

REPORT INFORMATION
  Report Type: 
  Country: None (occurrence: None)
  Receive Date: 20090408
  Receipt Date: 20090327
  Transmission Date: 20091009
  Serious: Yes (Other)
  Sender: FDA-Public Use
  Company Number: FABR-1000706

PATIENT
  Age: 39 Year
  Sex: Male
  Weight: 98 kg

DRUGS (5)
  1. FABRAZYME [Suspect]
     Indication: FABRY'S DISEASE
     Dosage: 1 MG/KG, Q2W, INTRAVENOUS
     Route: 042
     Dates: start: 20070608
  2. FABRAZYME [Suspect]
  3. VOTAN SR [Concomitant]
  4. NAPOSIN [Concomitant]
  5. TEGRETOL [Concomitant]

REACTIONS (2)
  - MICROALBUMINURIA [None]
  - OEDEMA PERIPHERAL [None]
